FAERS Safety Report 8467442-9 (Version None)
Quarter: 2012Q2

REPORT INFORMATION
  Report Type: 
  Country: None (occurrence: None)
  Receive Date: 20120626
  Receipt Date: 20120504
  Transmission Date: 20120825
  Serious: No
  Sender: FDA-Public Use
  Company Number: US-ASTRAZENECA-2012SE12650

PATIENT
  Age: 34 Year
  Sex: Female

DRUGS (1)
  1. CAPRELSA [Suspect]
     Indication: THYROID CANCER
     Route: 048

REACTIONS (10)
  - ABDOMINAL DISTENSION [None]
  - RASH [None]
  - DIARRHOEA [None]
  - STOMATITIS [None]
  - NAUSEA [None]
  - CONFUSIONAL STATE [None]
  - HOT FLUSH [None]
  - DEPRESSION [None]
  - SPEECH DISORDER [None]
  - DIZZINESS [None]
